FAERS Safety Report 5132796-8 (Version None)
Quarter: 2006Q4

REPORT INFORMATION
  Report Type: 
  Country: None (occurrence: None)
  Receive Date: 20061023
  Receipt Date: 20061013
  Transmission Date: 20070319
  Serious: Yes (Death)
  Sender: FDA-Public Use
  Company Number: US-MERCK-0610USA11453

PATIENT
  Sex: Male

DRUGS (1)
  1. HYZAAR [Suspect]
     Route: 048
     Dates: start: 20011127

REACTIONS (1)
  - CEREBRAL HAEMORRHAGE [None]
